FAERS Safety Report 20906610 (Version 1)
Quarter: 2022Q2

REPORT INFORMATION
  Report Type: Spontaneous
  Country: US (occurrence: None)
  Receive Date: 20220602
  Receipt Date: 20220602
  Transmission Date: 20220721
  Serious: Yes (Hospitalization)
  Sender: FDA-Public Use
  Company Number: None

PATIENT
  Age: 78 Year
  Sex: Male

DRUGS (2)
  1. LISINOPRIL [Suspect]
     Active Substance: LISINOPRIL
     Indication: Hypertension
     Dates: start: 20150310, end: 20220331
  2. VALACYCLOVIR HYDROCHLORIDE [Suspect]
     Active Substance: VALACYCLOVIR HYDROCHLORIDE
     Indication: Herpes zoster
     Dates: start: 20150302, end: 20220331

REACTIONS (5)
  - Angioedema [None]
  - Laryngeal oedema [None]
  - Rash [None]
  - Therapy cessation [None]
  - Herpes zoster [None]

NARRATIVE: CASE EVENT DATE: 20220303
